FAERS Safety Report 4926725-7 (Version None)
Quarter: 2006Q1

REPORT INFORMATION
  Report Type: 
  Country: None (occurrence: None)
  Receive Date: 20060228
  Receipt Date: 20050603
  Transmission Date: 20060701
  Serious: No
  Sender: FDA-Public Use
  Company Number: US-GLAXOSMITHKLINE-A0561138A

PATIENT
  Age: 48 Year
  Sex: Male
  Weight: 120.9 kg

DRUGS (10)
  1. LAMICTAL [Suspect]
     Indication: BIPOLAR DISORDER
     Dosage: 25MG PER DAY
     Route: 048
     Dates: start: 20050501, end: 20050531
  2. PAXIL [Suspect]
     Indication: DRUG USE FOR UNKNOWN INDICATION
     Route: 048
  3. LITHIUM [Concomitant]
  4. CATAPRES [Concomitant]
  5. CLINDAMYCIN HCL [Concomitant]
  6. CLARINEX [Concomitant]
  7. METFORMIN [Concomitant]
  8. TRICOR [Concomitant]
  9. SYNTHROID [Concomitant]
  10. DEPAKOTE [Concomitant]

REACTIONS (2)
  - DRUG ERUPTION [None]
  - PHOTOSENSITIVITY REACTION [None]
